FAERS Safety Report 18487133 (Version 2)
Quarter: 2020Q4

REPORT INFORMATION
  Report Type: Spontaneous
  Country: US (occurrence: US)
  Receive Date: 20201110
  Receipt Date: 20201117
  Transmission Date: 20210114
  Serious: Yes (Life-Threatening, Hospitalization, Other)
  Sender: FDA-Public Use
  Company Number: US-PFIZER INC-2020432149

PATIENT
  Age: 52 Year
  Sex: Female

DRUGS (54)
  1. HEPARIN SODIUM. [Suspect]
     Active Substance: HEPARIN SODIUM
     Dosage: 5000 UNITS X2; POD 3
     Route: 058
  2. HEPARIN SODIUM. [Suspect]
     Active Substance: HEPARIN SODIUM
     Dosage: 5000 UNITSX2; POD 6
     Route: 058
  3. AMIODARONE [Suspect]
     Active Substance: AMIODARONE
     Indication: EXTRASYSTOLES
     Dosage: 150 MG, SINGLE, ON POD 9
     Route: 042
  4. PIPERACILLIN/TAZOBACTAM [Concomitant]
     Active Substance: PIPERACILLIN SODIUM\TAZOBACTAM SODIUM
     Indication: NOSOCOMIAL INFECTION
     Dosage: POD 4 TO POD 6
  5. LEVOTHYROXINE. [Concomitant]
     Active Substance: LEVOTHYROXINE
     Dosage: POD 1 TO POD 3; POD 6
     Route: 048
  6. ASPIRIN [ACETYLSALICYLIC ACID] [Concomitant]
     Active Substance: ASPIRIN
     Indication: PROPHYLAXIS
     Dosage: POD 3 TO POD 5
  7. PHENYLEPHRINE [Concomitant]
     Active Substance: PHENYLEPHRINE HYDROCHLORIDE
     Dosage: WEANED OFF
  8. ONDANSETRON [Concomitant]
     Active Substance: ONDANSETRON
     Dosage: DAY OF SURGERY
  9. MORPHINE [Concomitant]
     Active Substance: MORPHINE
     Dosage: DAY OF SURGERY
  10. FENTANYL. [Concomitant]
     Active Substance: FENTANYL
     Dosage: DAY OF SURGERY TO POD 2; POD 4 TO 6
  11. FUROSEMIDE. [Concomitant]
     Active Substance: FUROSEMIDE
     Dosage: POD 2 TO POD 3
  12. PANTOPRAZOLE [Concomitant]
     Active Substance: PANTOPRAZOLE
     Dosage: POD 4 TO POD 6
  13. HEPARIN SODIUM. [Suspect]
     Active Substance: HEPARIN SODIUM
     Dosage: 5000 UNITSX1; POD 4
     Route: 058
  14. DEXTROSE. [Concomitant]
     Active Substance: DEXTROSE
     Dosage: CONTINUOUS INFUSION OF DEXTROSE 5% IN LACTATED RINGERS (D5LR)
  15. DEXTROSE. [Concomitant]
     Active Substance: DEXTROSE
     Dosage: DEXTROSE 5% WITH SODIUM BICARBONATE 150 MEQ/L
  16. VANCOMYCIN [Concomitant]
     Active Substance: VANCOMYCIN
     Dosage: POD 4
  17. IPRATROPIUM/ALBUTEROL [Concomitant]
     Active Substance: ALBUTEROL\IPRATROPIUM
     Dosage: DAY OF SURGERY TO POD 6
  18. DIAZEPAM. [Concomitant]
     Active Substance: DIAZEPAM
     Dosage: DAY OF SURGERY TO POD 2
  19. LAMOTRIGINE. [Concomitant]
     Active Substance: LAMOTRIGINE
     Dosage: POD 2 TO POD 3
  20. HYDROMORPHONE [Concomitant]
     Active Substance: HYDROMORPHONE
     Dosage: POD 6
  21. HEPARIN SODIUM. [Suspect]
     Active Substance: HEPARIN SODIUM
     Dosage: 5000 UNITS; POD 2
     Route: 058
  22. AMIODARONE [Suspect]
     Active Substance: AMIODARONE
     Indication: PROPHYLAXIS
     Dosage: 200 MG, 2X/DAY; POD 1
     Route: 048
  23. PHENYLEPHRINE [Concomitant]
     Active Substance: PHENYLEPHRINE HYDROCHLORIDE
     Dosage: 40 MCG/MIN AT MIDNIGHT OFF AT 0930
  24. ISOFLURANE. [Concomitant]
     Active Substance: ISOFLURANE
     Dosage: 0.5%-1% WITH OXYGEN; DAY OF SURGERY
  25. FAMOTIDINE. [Concomitant]
     Active Substance: FAMOTIDINE
     Dosage: DAY OF SURGERY
  26. LORAZEPAM. [Concomitant]
     Active Substance: LORAZEPAM
     Dosage: POD 4 TO POD 6
  27. FONDAPARINUX [Concomitant]
     Active Substance: FONDAPARINUX
     Indication: PROPHYLAXIS
     Dosage: UNK
  28. PROPOFOL. [Concomitant]
     Active Substance: PROPOFOL
     Dosage: UNK
  29. CEFAZOLIN [Concomitant]
     Active Substance: CEFAZOLIN
     Dosage: DAY OF SURGERY; POD 1
  30. ONDANSETRON [Concomitant]
     Active Substance: ONDANSETRON
     Dosage: POD 2
  31. HEPARIN SODIUM. [Suspect]
     Active Substance: HEPARIN SODIUM
     Indication: PROPHYLAXIS
     Dosage: 3100 UNITS; POD -10
     Route: 042
  32. DEXTROSE. [Concomitant]
     Active Substance: DEXTROSE
     Dosage: 50 G
  33. DEXTROSE. [Concomitant]
     Active Substance: DEXTROSE
     Dosage: THRICE GIVEN 25 G OF DEXTROSE 50%
  34. SODIUM BICARBONATE. [Concomitant]
     Active Substance: SODIUM BICARBONATE
     Dosage: 3 SLOW IV PUSHES OF SODIUM BICARBONATE 50 MEQ
     Route: 042
  35. SODIUM BICARBONATE. [Concomitant]
     Active Substance: SODIUM BICARBONATE
     Dosage: DEXTROSE 5% WITH SODIUM BICARBONATE 150 MEQ/L
  36. VANCOMYCIN [Concomitant]
     Active Substance: VANCOMYCIN
     Indication: NOSOCOMIAL INFECTION
     Dosage: DAY OF SURGERY
  37. N-ACETYLCYSTEINE [Concomitant]
     Active Substance: ACETYLCYSTEINE
     Dosage: DAY OF SURGERY TO POD 3
  38. OMEPRAZOLE. [Concomitant]
     Active Substance: OMEPRAZOLE
     Dosage: POD 1 TO POD 3
  39. CLONAZEPAM. [Concomitant]
     Active Substance: CLONAZEPAM
     Dosage: POD 2 TO POD 3
  40. METOPROLOL. [Concomitant]
     Active Substance: METOPROLOL
     Dosage: POD 2 TO POD 6
  41. AMIODARONE [Suspect]
     Active Substance: AMIODARONE
     Dosage: 400 MG, 2X/DAY; POD 3
     Route: 048
  42. PHENYLEPHRINE [Concomitant]
     Active Substance: PHENYLEPHRINE HYDROCHLORIDE
     Dosage: 20-40 MCG/MIN
  43. INSULIN [Concomitant]
     Active Substance: INSULIN NOS
     Dosage: 2 UNITS/HR DURING CPB
  44. FAMOTIDINE. [Concomitant]
     Active Substance: FAMOTIDINE
     Dosage: POD 2-6
  45. HYDROCODONE [Concomitant]
     Active Substance: HYDROCODONE
     Dosage: POD 1 TO POD 2
  46. LACTATED RINGERS SOLUTION [Concomitant]
     Active Substance: CALCIUM CHLORIDE\POTASSIUM CHLORIDE\SODIUM CHLORIDE\SODIUM LACTATE
     Dosage: INFUSION OF DEXTROSE 5% IN LACTATED RINGERS
  47. HEPARIN SODIUM. [Suspect]
     Active Substance: HEPARIN SODIUM
     Indication: ANTICOAGULANT THERAPY
     Dosage: 42000 UNITS; DAY OF SURGERY
     Route: 042
  48. AMIODARONE [Suspect]
     Active Substance: AMIODARONE
     Indication: EXTRASYSTOLES
     Dosage: 200 MG, 2X/DAY; POD 2
     Route: 048
  49. AMIODARONE [Suspect]
     Active Substance: AMIODARONE
     Indication: PROPHYLAXIS
     Dosage: 150-MG X2; POD 3
     Route: 040
  50. KETOROLAC [Concomitant]
     Active Substance: KETOROLAC TROMETHAMINE
     Dosage: DAY OF SURGERY, POD 1
  51. OXYCODONE [Concomitant]
     Active Substance: OXYCODONE
     Dosage: DAY OF SURGERY TO POD1
  52. GABAPENTIN. [Concomitant]
     Active Substance: GABAPENTIN
     Dosage: POD 1 TO POD 3
  53. ACETAMINOPHEN. [Concomitant]
     Active Substance: ACETAMINOPHEN
     Dosage: POD 3, POD 5
  54. NORMAL SALINE [Concomitant]
     Active Substance: SODIUM CHLORIDE
     Dosage: DAY OF SURGERY TO POD 2

REACTIONS (8)
  - Drug hypersensitivity [Recovered/Resolved]
  - Hypogammaglobulinaemia [Recovered/Resolved]
  - Drug-induced liver injury [Recovered/Resolved]
  - Respiratory alkalosis [Recovered/Resolved]
  - Mixed liver injury [Recovered/Resolved]
  - Encephalopathy [Recovered/Resolved]
  - Nosocomial infection [Recovered/Resolved]
  - Hypoglycaemia [Recovered/Resolved]
